FAERS Safety Report 10874324 (Version 2)
Quarter: 2015Q1

REPORT INFORMATION
  Report Type: Spontaneous
  Country: US (occurrence: None)
  Receive Date: 20150224
  Receipt Date: 20150331
  Transmission Date: 20150721
  Serious: Yes (Other)
  Sender: FDA-Public Use
  Company Number: 2015VER00094

PATIENT
  Age: 19 Year
  Sex: Female
  Weight: 69.8 kg

DRUGS (2)
  1. MYORISAN [Suspect]
     Active Substance: ISOTRETINOIN
     Indication: ACNE
     Route: 048
     Dates: start: 20141211, end: 20150113
  2. SKYLA IUD [Concomitant]

REACTIONS (6)
  - Depressed mood [None]
  - Feeling abnormal [None]
  - Insomnia [None]
  - Dry skin [None]
  - Pruritus generalised [None]
  - Yellow skin [None]

NARRATIVE: CASE EVENT DATE: 20141218
